FAERS Safety Report 4359541-8 (Version None)
Quarter: 2004Q2

REPORT INFORMATION
  Report Type: 
  Country: None (occurrence: None)
  Receive Date: 20040512
  Receipt Date: 20040426
  Transmission Date: 20050107
  Serious: Yes (Other)
  Sender: FDA-Public Use
  Company Number: 2004-DE-02243GD

PATIENT
  Sex: 0

DRUGS (1)
  1. METHOTREXATE [Suspect]
     Dosage: NR (NR), IU
     Route: 015

REACTIONS (6)
  - CEREBRAL HAEMORRHAGE NEONATAL [None]
  - CEREBRAL PALSY [None]
  - DEVELOPMENTAL DELAY [None]
  - HYDROCEPHALUS [None]
  - MATERNAL DRUGS AFFECTING FOETUS [None]
  - PREMATURE BABY [None]
